FAERS Safety Report 15281833 (Version 1)
Quarter: 2018Q3

REPORT INFORMATION
  Report Type: Spontaneous
  Country: US (occurrence: US)
  Receive Date: 20180731
  Receipt Date: 20180731
  Transmission Date: 20181010
  Serious: Yes (Other)
  Sender: FDA-Public Use
  Company Number: None

PATIENT
  Age: 76 Year
  Sex: Female
  Weight: 87.3 kg

DRUGS (10)
  1. LETROZOLE. [Concomitant]
     Active Substance: LETROZOLE
  2. MAGNESIUM [Concomitant]
     Active Substance: MAGNESIUM
  3. DOCUSATE [Concomitant]
     Active Substance: DOCUSATE
  4. METOPROLOL. [Concomitant]
     Active Substance: METOPROLOL
  5. PANTOPRAZOLE [Concomitant]
     Active Substance: PANTOPRAZOLE
  6. BUMEX [Concomitant]
     Active Substance: BUMETANIDE
  7. SPIRONOLACTONE. [Concomitant]
     Active Substance: SPIRONOLACTONE
  8. KISQALI FEMARA CO?PACK [Suspect]
     Active Substance: LETROZOLE\RIBOCICLIB
     Indication: BREAST CANCER
     Route: 048
     Dates: start: 20180612
  9. ASPIRIN. [Concomitant]
     Active Substance: ASPIRIN
  10. VITAMIN D [Concomitant]
     Active Substance: CHOLECALCIFEROL

REACTIONS (3)
  - Diarrhoea [None]
  - Vomiting [None]
  - Nausea [None]
